FAERS Safety Report 8382296-7 (Version None)
Quarter: 2012Q2

REPORT INFORMATION
  Report Type: 
  Country: None (occurrence: None)
  Receive Date: 20120524
  Receipt Date: 20120521
  Transmission Date: 20120825
  Serious: Yes (Life-Threatening, Hospitalization)
  Sender: FDA-Public Use
  Company Number: DE-B.I. PHARMACEUTICALS,INC./RIDGEFIELD-2012-DE-01322DE

PATIENT
  Age: 65 Year
  Sex: Male
  Weight: 100 kg

DRUGS (7)
  1. METOPROLOL 47.5 MG [Concomitant]
     Dosage: 95 MG
     Route: 048
  2. SIMVASTATIN [Concomitant]
     Dosage: 20 MG
     Route: 048
  3. MAGNETRANS [Concomitant]
     Dosage: 243 MG
     Route: 048
  4. PRADAXA [Suspect]
     Indication: ATRIAL FIBRILLATION
     Dosage: 300 MG
     Route: 048
     Dates: start: 20111129, end: 20120319
  5. OMEPRAZOLE [Concomitant]
     Dosage: 20 MG
     Route: 048
  6. ATACAND PLUS 32MG/25MG [Concomitant]
     Dosage: 32MG/25MG
     Route: 048
  7. VESICARE [Concomitant]
     Dosage: 10 MG
     Route: 048

REACTIONS (2)
  - INTRACARDIAC THROMBUS [None]
  - AKINESIA [None]
